FAERS Safety Report 7112820-3 (Version None)
Quarter: 2010Q4

REPORT INFORMATION
  Report Type: 
  Country: None (occurrence: None)
  Receive Date: 20101119
  Receipt Date: 20101112
  Transmission Date: 20110411
  Serious: Yes (Death)
  Sender: FDA-Public Use
  Company Number: US-BAYER-200931219NA

PATIENT
  Age: 45 Year
  Sex: Female
  Weight: 56 kg

DRUGS (17)
  1. MAGNEVIST [Suspect]
     Indication: ANGIOGRAM
     Dosage: TOTAL DAILY DOSE: 20 ML
     Route: 042
     Dates: start: 20061207, end: 20061207
  2. OMNISCAN [Suspect]
     Indication: NUCLEAR MAGNETIC RESONANCE IMAGING BRAIN
     Route: 042
     Dates: start: 20060128, end: 20060128
  3. OMNISCAN [Suspect]
     Dosage: TOTAL DAILY DOSE: 6 ML
     Route: 042
     Dates: start: 20060207, end: 20060207
  4. OMNISCAN [Suspect]
     Route: 042
     Dates: start: 20060717, end: 20060717
  5. MULTIHANCE [Suspect]
     Indication: PRODUCT USED FOR UNKNOWN INDICATION
  6. PROHANCE [Suspect]
     Indication: PRODUCT USED FOR UNKNOWN INDICATION
  7. OPTIMARK [Suspect]
     Indication: PRODUCT USED FOR UNKNOWN INDICATION
  8. UNKNOWN GBCA [Suspect]
     Indication: VENOGRAM
     Dates: start: 20060421, end: 20060421
  9. COUMADIN [Concomitant]
     Route: 048
  10. AMIODARONE [Concomitant]
     Dosage: TOTAL DAILY DOSE: 200 MG
     Route: 048
  11. ENALAPRIL MALEATE [Concomitant]
     Dosage: TOTAL DAILY DOSE: 20 MG
  12. TOPROL-XL [Concomitant]
  13. DURAGESIC-100 [Concomitant]
     Indication: PAIN
  14. EPOGEN [Concomitant]
     Indication: DIALYSIS
     Route: 058
  15. NITROGLYCERIN [Concomitant]
     Indication: PAIN
     Route: 060
  16. PREDNISONE [Concomitant]
     Indication: PAIN
     Dosage: TOTAL DAILY DOSE: 10 MG
     Dates: start: 20070823
  17. SIMVASTATIN [Concomitant]
     Dosage: TOTAL DAILY DOSE: 40 MG

REACTIONS (17)
  - BURNING SENSATION [None]
  - EXTREMITY CONTRACTURE [None]
  - FIBROSIS [None]
  - GENERAL PHYSICAL HEALTH DETERIORATION [None]
  - JOINT CONTRACTURE [None]
  - JOINT RANGE OF MOTION DECREASED [None]
  - MOBILITY DECREASED [None]
  - NEPHROGENIC SYSTEMIC FIBROSIS [None]
  - OEDEMA PERIPHERAL [None]
  - PAIN [None]
  - PAIN IN EXTREMITY [None]
  - PARAESTHESIA [None]
  - PEAU D'ORANGE [None]
  - SKIN FIBROSIS [None]
  - SKIN HYPERTROPHY [None]
  - SKIN INDURATION [None]
  - SKIN TIGHTNESS [None]
